FAERS Safety Report 17075314 (Version 1)
Quarter: 2019Q4

REPORT INFORMATION
  Report Type: Spontaneous
  Country: US (occurrence: US)
  Receive Date: 20191125
  Receipt Date: 20191125
  Transmission Date: 20200122
  Serious: Yes (Other)
  Sender: FDA-Public Use
  Company Number: None

PATIENT
  Age: 40 Year
  Sex: Male

DRUGS (6)
  1. DEXAMETHASON [Concomitant]
     Active Substance: DEXAMETHASONE
  2. METRONIDAZOLE. [Concomitant]
     Active Substance: METRONIDAZOLE
  3. OXYCODONE [Concomitant]
     Active Substance: OXYCODONE
  4. CLENPIQ [Concomitant]
     Active Substance: ANHYDROUS CITRIC ACID\MAGNESIUM OXIDE\SODIUM PICOSULFATE
  5. NEOMYCIN. [Concomitant]
     Active Substance: NEOMYCIN
  6. CAPECITABINE. [Suspect]
     Active Substance: CAPECITABINE
     Indication: RECTAL CANCER
     Route: 048
     Dates: start: 20190503

REACTIONS (1)
  - Metastases to lung [None]

NARRATIVE: CASE EVENT DATE: 20191122
